FAERS Safety Report 9689487 (Version 2)
Quarter: 2013Q4

REPORT INFORMATION
  Report Type: Spontaneous
  Country: US (occurrence: US)
  Receive Date: 20131114
  Receipt Date: 20131125
  Transmission Date: 20140711
  Serious: No
  Sender: FDA-Public Use
  Company Number: US-009507513-1311USA004062

PATIENT
  Sex: Female

DRUGS (2)
  1. SINEMET [Suspect]
     Route: 048
  2. CARBIDOPA (+) LEVODOPA [Suspect]
     Indication: PARKINSON^S DISEASE
     Dosage: UNK
     Route: 048
     Dates: start: 20120430

REACTIONS (1)
  - Drug ineffective [Unknown]
